FAERS Safety Report 9033897 (Version 1)
Quarter: 2013Q1

REPORT INFORMATION
  Report Type: Spontaneous
  Country: US (occurrence: US)
  Receive Date: 20130128
  Receipt Date: 20130128
  Transmission Date: 20140127
  Serious: Yes (Hospitalization, Other)
  Sender: FDA-Public Use
  Company Number: US-AMGEN-USASP2012068130

PATIENT
  Age: 55 Year
  Sex: Female

DRUGS (1)
  1. ENBREL [Suspect]
     Indication: RHEUMATOID ARTHRITIS
     Dosage: 50 MG, QWK
     Dates: start: 20110422

REACTIONS (5)
  - Coma [Recovered/Resolved]
  - Cervix carcinoma [Recovered/Resolved]
  - Human papilloma virus test positive [Recovered/Resolved]
  - Post procedural haemorrhage [Recovered/Resolved]
  - Arthropod sting [Recovered/Resolved]
